FAERS Safety Report 7027781-5 (Version None)
Quarter: 2010Q4

REPORT INFORMATION
  Report Type: 
  Country: None (occurrence: None)
  Receive Date: 20101005
  Receipt Date: 20100927
  Transmission Date: 20110411
  Serious: Yes (Hospitalization, Other)
  Sender: FDA-Public Use
  Company Number: US-BAYER-201015021NA

PATIENT
  Age: 32 Year
  Sex: Female
  Weight: 54 kg

DRUGS (1)
  1. MIRENA [Suspect]
     Indication: CONTRACEPTION
     Dosage: FREQUENCY: CONTINUOUS
     Route: 015
     Dates: start: 20090424, end: 20100219

REACTIONS (5)
  - AMENORRHOEA [None]
  - BACK PAIN [None]
  - DEVICE DISLOCATION [None]
  - METRORRHAGIA [None]
  - MOVEMENT DISORDER [None]
